FAERS Safety Report 15607388 (Version 6)
Quarter: 2018Q4

REPORT INFORMATION
  Report Type: Spontaneous
  Country: US (occurrence: US)
  Receive Date: 20181112
  Receipt Date: 20181225
  Transmission Date: 20190205
  Serious: No
  Sender: FDA-Public Use
  Company Number: US-009507513-1810USA007596

PATIENT
  Age: 21 Year
  Sex: Female
  Weight: 101.13 kg

DRUGS (2)
  1. NEXPLANON [Suspect]
     Active Substance: ETONOGESTREL
     Dosage: 1 DOSAGE FORM, IN RIGHT ARM
     Route: 059
     Dates: start: 2016, end: 20180923
  2. NEXPLANON [Suspect]
     Active Substance: ETONOGESTREL
     Dosage: 1 DOSAGE FORM, IN LEFT ARM
     Route: 059
     Dates: start: 20130815

REACTIONS (5)
  - Incorrect product administration duration [Unknown]
  - Menstruation delayed [Unknown]
  - Complication associated with device [Not Recovered/Not Resolved]
  - Overdose [Unknown]
  - No adverse event [Unknown]

NARRATIVE: CASE EVENT DATE: 2016
